FAERS Safety Report 6674821-9 (Version None)
Quarter: 2010Q2

REPORT INFORMATION
  Report Type: 
  Country: None (occurrence: None)
  Receive Date: 20100409
  Receipt Date: 20100401
  Transmission Date: 20101027
  Serious: Yes (Hospitalization)
  Sender: FDA-Public Use
  Company Number: BR-ABBOTT-10P-020-0634063-00

PATIENT
  Age: 4 Year
  Sex: Male

DRUGS (2)
  1. VALPAKINE [Suspect]
     Indication: INFANTILE SPASMS
  2. CLOBAZAM [Concomitant]
     Indication: INFANTILE SPASMS

REACTIONS (5)
  - ANAEMIA MACROCYTIC [None]
  - HYPOALBUMINAEMIA [None]
  - HYPONATRAEMIA [None]
  - THROMBOCYTOPENIA [None]
  - VITAMIN B12 DEFICIENCY [None]
